FAERS Safety Report 10377755 (Version 2)
Quarter: 2014Q3

REPORT INFORMATION
  Report Type: Spontaneous
  Country: MX (occurrence: MX)
  Receive Date: 20140812
  Receipt Date: 20140812
  Transmission Date: 20150326
  Serious: Yes (Other)
  Sender: FDA-Public Use
  Company Number: PHHY2013MX155466

PATIENT
  Age: 73 Year
  Sex: Female

DRUGS (10)
  1. GALVUS MET [Suspect]
     Active Substance: METFORMIN HYDROCHLORIDE\VILDAGLIPTIN
     Dosage: 1 UKN, DAILY
  2. DIOVAN [Suspect]
     Active Substance: VALSARTAN
     Indication: HYPERTENSION
     Dosage: 1 DF (80 MG), DAILY
     Route: 048
  3. DIOVAN [Suspect]
     Active Substance: VALSARTAN
     Dosage: 1.5 DF (80 MG) DAILY
     Route: 048
  4. ESTROGEN [Concomitant]
     Active Substance: ESTRONE\SUS SCROFA OVARY
     Indication: INADEQUATE LUBRICATION
     Dosage: 1 UKN, MONDAYS TO FRIDAYS
     Dates: start: 1990
  5. TOFRANIL [Suspect]
     Active Substance: IMIPRAMINE HYDROCHLORIDE
     Indication: DEPRESSION
     Dosage: 1 DF (25 MG), DAILY
     Route: 048
     Dates: start: 1970
  6. GLUTAMIC ACID [Concomitant]
     Active Substance: GLUTAMIC ACID
     Indication: VITAMIN SUPPLEMENTATION
     Dosage: 1 UKN, DAILY
     Dates: start: 201306
  7. GLUTAMIC ACID [Concomitant]
     Active Substance: GLUTAMIC ACID
     Indication: MINERAL SUPPLEMENTATION
  8. MELLITRON [Concomitant]
     Indication: DIABETES MELLITUS
     Dosage: 2 UKN, DAILY
     Dates: start: 2007
  9. DIMETICONA [Concomitant]
     Indication: GASTRIC DILATATION
     Dosage: 20 UKN, DAILY
     Dates: start: 201301
  10. GALVUS MET [Suspect]
     Active Substance: METFORMIN HYDROCHLORIDE\VILDAGLIPTIN
     Indication: DIABETES MELLITUS
     Dosage: 2 UKN, DAILY
     Route: 048
     Dates: start: 201302

REACTIONS (2)
  - Blood pressure increased [Recovering/Resolving]
  - Cataract [Recovered/Resolved]

NARRATIVE: CASE EVENT DATE: 2013
